FAERS Safety Report 8796135 (Version 1)
Quarter: 2012Q4

REPORT INFORMATION
  Report Type: 
  Country: DE (occurrence: FR)
  Receive Date: 20120919
  Receipt Date: 20120919
  Transmission Date: 20130627
  Serious: Yes (Hospitalization)
  Sender: FDA-Public Use
  Company Number: FR-BRISTOL-MYERS SQUIBB COMPANY-16917809

PATIENT
  Age: 80 Year
  Sex: Female

DRUGS (5)
  1. ABILIFY TABS [Suspect]
     Indication: BIPOLAR DISORDER
     Route: 048
     Dates: start: 200604, end: 201206
  2. LAMICTAL [Concomitant]
     Indication: BIPOLAR DISORDER
     Dosage: tabs
     Route: 048
     Dates: start: 200603
  3. LEXOMIL [Concomitant]
     Indication: ANXIETY
     Dosage: tabs
     Route: 048
     Dates: start: 2006
  4. LEVOTHYROXINE [Concomitant]
     Indication: HYPOTHYROIDISM
     Dosage: tabs
     Route: 048
  5. EUPRESSYL [Concomitant]
     Indication: HYPERTENSION
     Dosage: tabs
     Route: 048

REACTIONS (3)
  - Hyponatraemia [Recovered/Resolved]
  - Status epilepticus [Recovered/Resolved]
  - Myoclonus [Recovered/Resolved]
